FAERS Safety Report 14875650 (Version 2)
Quarter: 2018Q2

REPORT INFORMATION
  Report Type: Other
  Country: GB (occurrence: GB)
  Receive Date: 20180510
  Receipt Date: 20180605
  Transmission Date: 20180711
  Serious: Yes (Life-Threatening, Hospitalization, Disabling)
  Sender: FDA-Public Use
  Company Number: GB-CELLTRION INC.-2018GB019625

PATIENT

DRUGS (4)
  1. INFLIXIMAB (UNKNOWN) [Suspect]
     Active Substance: INFLIXIMAB
     Indication: CROHN^S DISEASE
     Dosage: 293 UNK
     Route: 042
     Dates: start: 2017, end: 2017
  2. OMEPRAZOLE. [Concomitant]
     Active Substance: OMEPRAZOLE
  3. ANAESTHETIC [Concomitant]
     Active Substance: UNSPECIFIED INGREDIENT
     Indication: KNEE ARTHROPLASTY
     Dosage: UNK
     Dates: start: 20180412, end: 20180412
  4. AZATHIOPRINE. [Concomitant]
     Active Substance: AZATHIOPRINE

REACTIONS (5)
  - Dyspnoea [Unknown]
  - Ventricular tachycardia [Recovered/Resolved]
  - Acute myocardial infarction [Recovered/Resolved with Sequelae]
  - Ventricular hypokinesia [Not Recovered/Not Resolved]
  - Hypotension [Unknown]

NARRATIVE: CASE EVENT DATE: 20180412
